FAERS Safety Report 4938462-3 (Version None)
Quarter: 2006Q1

REPORT INFORMATION
  Report Type: 
  Country: None (occurrence: None)
  Receive Date: 20060309
  Receipt Date: 20050322
  Transmission Date: 20060701
  Serious: No
  Sender: FDA-Public Use
  Company Number: US-GLAXOSMITHKLINE-A0550990A

PATIENT
  Sex: Male

DRUGS (1)
  1. CONTAC 12 HOUR [Suspect]

REACTIONS (1)
  - DRUG INEFFECTIVE [None]
